FAERS Safety Report 21811890 (Version 1)
Quarter: 2023Q1

REPORT INFORMATION
  Report Type: 
  Country: None (occurrence: None)
  Receive Date: 20230103
  Receipt Date: 20230103
  Transmission Date: 20230417
  Serious: No
  Sender: FDA-Public Use
  Company Number: None

PATIENT
  Sex: Female

DRUGS (1)
  1. LACTULOSE [Suspect]
     Active Substance: LACTULOSE

REACTIONS (1)
  - Product use complaint [Recovered/Resolved]
